FAERS Safety Report 8334933-0 (Version None)
Quarter: 2012Q2

REPORT INFORMATION
  Report Type: 
  Country: None (occurrence: None)
  Receive Date: 20120503
  Receipt Date: 20120424
  Transmission Date: 20120825
  Serious: Yes (Hospitalization, Other)
  Sender: FDA-Public Use
  Company Number: DE-JNJFOC-20100707447

PATIENT
  Sex: Female
  Weight: 120 kg

DRUGS (2)
  1. REMICADE [Suspect]
     Indication: PUSTULAR PSORIASIS
     Route: 042
     Dates: start: 20061101, end: 20100501
  2. REMICADE [Suspect]
     Route: 042

REACTIONS (3)
  - BREAST CANCER RECURRENT [None]
  - PSORIASIS [None]
  - BREAST CANCER [None]
